FAERS Safety Report 13118534 (Version 1)
Quarter: 2017Q1

REPORT INFORMATION
  Report Type: Spontaneous
  Country: US (occurrence: US)
  Receive Date: 20170116
  Receipt Date: 20170116
  Transmission Date: 20170428
  Serious: Yes (Other)
  Sender: FDA-Public Use
  Company Number: US-PFIZER INC-2017011813

PATIENT
  Age: 6 Year
  Sex: Female
  Weight: 10 kg

DRUGS (4)
  1. ZANTAC [Concomitant]
     Active Substance: RANITIDINE HYDROCHLORIDE
     Dosage: 2 ML, 1X/DAY (NIGHTLY AT BEDTIME)
     Route: 048
  2. CARNITINE [Concomitant]
     Active Substance: CARNITINE
     Dosage: 2 ML, DAILY
     Route: 048
  3. GENOTROPIN MQ [Suspect]
     Active Substance: SOMATROPIN
     Dosage: 0.6 MG, UNK
  4. GENOTROPIN MQ [Suspect]
     Active Substance: SOMATROPIN
     Indication: PRADER-WILLI SYNDROME
     Dosage: 0.8 MG, DAILY
     Dates: start: 201007

REACTIONS (10)
  - Condition aggravated [Unknown]
  - Scoliosis [Unknown]
  - Torticollis [Not Recovered/Not Resolved]
  - Weight increased [Unknown]
  - Hyperphagia [Unknown]
  - Seizure [Not Recovered/Not Resolved]
  - Sleep disorder [Not Recovered/Not Resolved]
  - Hypotonia [Unknown]
  - Dyspraxia [Unknown]
  - Abnormal behaviour [Unknown]
